FAERS Safety Report 25346185 (Version 1)
Quarter: 2025Q2

REPORT INFORMATION
  Report Type: Spontaneous
  Country: EG (occurrence: EG)
  Receive Date: 20250522
  Receipt Date: 20250522
  Transmission Date: 20250716
  Serious: Yes (Hospitalization, Other)
  Sender: NOVO NORDISK
  Company Number: EG-NOVOPROD-1430731

PATIENT
  Sex: Male

DRUGS (1)
  1. INSULIN HUMAN [Suspect]
     Active Substance: INSULIN HUMAN
     Indication: Diabetes mellitus
     Dosage: 10 IU, QD(MAY BE10 U DAILY)
     Route: 058

REACTIONS (6)
  - Cerebrovascular accident [Unknown]
  - Cardiac operation [Unknown]
  - Gait inability [Unknown]
  - Deafness unilateral [Unknown]
  - Ear infection [Unknown]
  - Hyperglycaemia [Recovered/Resolved]
